FAERS Safety Report 8769445 (Version 1)
Quarter: 2012Q4

REPORT INFORMATION
  Report Type: 
  Country: JP (occurrence: JP)
  Receive Date: 20120906
  Receipt Date: 20120906
  Transmission Date: 20130627
  Serious: Yes (Other)
  Sender: FDA-Public Use
  Company Number: JP-PFIZER INC-2012212031

PATIENT
  Age: 83 Year
  Sex: Male

DRUGS (1)
  1. SELARA [Suspect]
     Dosage: 50 mg, daily
     Route: 048
     Dates: start: 20110309, end: 20110420

REACTIONS (3)
  - Renal failure acute [Unknown]
  - Cardiac failure acute [Unknown]
  - Hyperkalaemia [Unknown]
